FAERS Safety Report 9727370 (Version 1)
Quarter: 2013Q4

REPORT INFORMATION
  Report Type: Spontaneous
  Country: US (occurrence: US)
  Receive Date: 20131203
  Receipt Date: 20131203
  Transmission Date: 20140711
  Serious: No
  Sender: FDA-Public Use
  Company Number: US-PFIZER INC-2013345425

PATIENT
  Age: 54 Year
  Sex: Male
  Weight: 92.06 kg

DRUGS (5)
  1. EFFEXOR XR [Suspect]
     Indication: DEPRESSION
     Dosage: 75 MG, 1X/DAY
     Route: 048
     Dates: start: 20130927, end: 2013
  2. EFFEXOR XR [Suspect]
     Dosage: 150 MG, UNK
     Route: 048
     Dates: start: 2013, end: 2013
  3. EFFEXOR XR [Suspect]
     Dosage: UNK
     Route: 048
     Dates: start: 2013
  4. NORCO [Concomitant]
     Dosage: UNK
  5. NAPROXEN [Concomitant]
     Dosage: UNK

REACTIONS (1)
  - Libido decreased [Not Recovered/Not Resolved]
